FAERS Safety Report 20689258 (Version 4)
Quarter: 2022Q3

REPORT INFORMATION
  Report Type: Spontaneous
  Country: JP (occurrence: JP)
  Receive Date: 20220408
  Receipt Date: 20220715
  Transmission Date: 20221027
  Serious: No
  Sender: FDA-Public Use
  Company Number: JP-GLAXOSMITHKLINE-JP2022JPN059260

PATIENT

DRUGS (8)
  1. SOTROVIMAB [Suspect]
     Active Substance: SOTROVIMAB
     Indication: COVID-19
     Dosage: 500 MG/DAY
     Route: 041
     Dates: start: 20220330, end: 20220330
  2. SOTROVIMAB [Suspect]
     Active Substance: SOTROVIMAB
     Indication: Coronavirus test positive
  3. SOTROVIMAB [Suspect]
     Active Substance: SOTROVIMAB
     Indication: Body temperature increased
  4. SOTROVIMAB [Suspect]
     Active Substance: SOTROVIMAB
     Indication: Cough
  5. TRANEXAMIC ACID [Suspect]
     Active Substance: TRANEXAMIC ACID
     Indication: Rhinorrhoea
     Dosage: 250 MG/DAY
     Dates: start: 20220330, end: 20220330
  6. TRANEXAMIC ACID [Suspect]
     Active Substance: TRANEXAMIC ACID
     Indication: Oropharyngeal pain
  7. CARBOCYSTEINE [Suspect]
     Active Substance: CARBOCYSTEINE
     Dosage: 250 MG/DAY
     Dates: start: 20220330, end: 20220330
  8. DEXTROMETHORPHAN [Suspect]
     Active Substance: DEXTROMETHORPHAN
     Dosage: 15 MG/DAY
     Dates: start: 20220330, end: 20220330

REACTIONS (1)
  - Exposure during pregnancy [Unknown]
